FAERS Safety Report 6919014-2 (Version None)
Quarter: 2010Q3

REPORT INFORMATION
  Report Type: 
  Country: None (occurrence: None)
  Receive Date: 20100811
  Receipt Date: 20100728
  Transmission Date: 20110219
  Serious: Yes (Hospitalization)
  Sender: FDA-Public Use
  Company Number: US-ELI_LILLY_AND_COMPANY-US201007007485

PATIENT
  Age: 65 Year
  Sex: Female

DRUGS (1)
  1. STRATTERA [Suspect]
     Dosage: 100 MG, DAILY (1/D)

REACTIONS (2)
  - GASTROSTOMY TUBE INSERTION [None]
  - HOSPITALISATION [None]
